FAERS Safety Report 5555356-3 (Version None)
Quarter: 2007Q4

REPORT INFORMATION
  Report Type: 
  Country: None (occurrence: None)
  Receive Date: 20071213
  Receipt Date: 20070816
  Transmission Date: 20080405
  Serious: No
  Sender: FDA-Public Use
  Company Number: US-AMGEN-KDL233168

PATIENT
  Sex: Male
  Weight: 84.4 kg

DRUGS (15)
  1. ENBREL [Suspect]
     Indication: RHEUMATOID ARTHRITIS
     Route: 058
     Dates: start: 20070201
  2. METHOTREXATE [Concomitant]
     Route: 048
  3. PREVACID [Concomitant]
  4. FLONASE [Concomitant]
  5. ALLEGRA [Concomitant]
     Route: 048
  6. FLEXERIL [Concomitant]
     Route: 048
  7. TYLENOL (CAPLET) [Concomitant]
     Route: 048
  8. VIAGRA [Concomitant]
     Route: 048
  9. FOLIC ACID [Concomitant]
     Route: 048
  10. RELAFEN [Concomitant]
     Route: 048
  11. ASPIRIN [Concomitant]
     Route: 048
  12. LEXAPRO [Concomitant]
     Route: 048
  13. NEURONTIN [Concomitant]
     Route: 048
  14. LIPITOR [Concomitant]
     Route: 048
  15. PREDNISONE [Concomitant]
     Route: 048

REACTIONS (5)
  - DRY SKIN [None]
  - NODAL OSTEOARTHRITIS [None]
  - PAIN [None]
  - PRODUCTIVE COUGH [None]
  - RHEUMATOID ARTHRITIS [None]
